FAERS Safety Report 18097667 (Version 2)
Quarter: 2020Q3

REPORT INFORMATION
  Report Type: Spontaneous
  Country: ES (occurrence: ES)
  Receive Date: 20200730
  Receipt Date: 20200821
  Transmission Date: 20201103
  Serious: Yes (Life-Threatening, Hospitalization)
  Sender: FDA-Public Use
  Company Number: ES-BAXTER-2020BAX015304

PATIENT
  Age: 63 Year
  Sex: Female

DRUGS (12)
  1. DOXIL [Suspect]
     Active Substance: DOXORUBICIN HYDROCHLORIDE
     Indication: OVARIAN CANCER
     Dosage: SIX CYCLES
     Route: 065
     Dates: start: 201507, end: 201512
  2. GEMCITABINE. [Suspect]
     Active Substance: GEMCITABINE
     Dosage: 1000 MILLIGRAM/SQ. METER THREE CYCLES (1000 MG/M2)
     Route: 065
     Dates: start: 201406, end: 201409
  3. PACLITAXEL. [Suspect]
     Active Substance: PACLITAXEL
     Indication: OVARIAN CANCER
     Dosage: 175 MILLIGRAM/SQ. METER SIX CYCLES
     Route: 065
     Dates: start: 201204, end: 201209
  4. CARBOPLATIN. [Suspect]
     Active Substance: CARBOPLATIN
     Indication: OVARIAN CANCER
     Dosage: SIX CYCLES; AREA UNDER THE CURVE OF 5
     Route: 065
     Dates: start: 201204, end: 201209
  5. DOXIL [Suspect]
     Active Substance: DOXORUBICIN HYDROCHLORIDE
     Indication: NEOPLASM MALIGNANT
  6. TRABECTEDIN [Suspect]
     Active Substance: TRABECTEDIN
     Indication: NEOPLASM MALIGNANT
  7. OLAPARIB. [Suspect]
     Active Substance: OLAPARIB
     Indication: NEOPLASM MALIGNANT
     Dosage: 400 MILLIGRAM 12 H (HOURS)
     Route: 065
  8. CARBOPLATIN. [Suspect]
     Active Substance: CARBOPLATIN
     Indication: OVARIAN CANCER RECURRENT
     Dosage: AREA UNDER THE CURVE OF 5; THREE CYCLES
     Route: 065
     Dates: start: 201407, end: 201409
  9. CARBOPLATIN. [Suspect]
     Active Substance: CARBOPLATIN
     Indication: NEOPLASM MALIGNANT
     Dosage: AREA UNDER THE CURVE OF 2; WEEKLY CARBOPLATIN MONOTHERAPY
     Route: 065
     Dates: start: 201611, end: 201702
  10. OLAPARIB. [Suspect]
     Active Substance: OLAPARIB
     Indication: OVARIAN CANCER
  11. TRABECTEDIN [Suspect]
     Active Substance: TRABECTEDIN
     Indication: OVARIAN CANCER
     Dosage: SIX CYCLES
     Route: 065
     Dates: start: 201507, end: 201512
  12. GEMCITABINE. [Suspect]
     Active Substance: GEMCITABINE
     Indication: OVARIAN CANCER RECURRENT
     Dosage: 1000 MILLIGRAM/SQ. METER THREE CYCLES
     Route: 065
     Dates: start: 201406, end: 201409

REACTIONS (2)
  - Gastrointestinal infection [Recovered/Resolved]
  - Acute myeloid leukaemia [Unknown]
